FAERS Safety Report 9255324 (Version 1)
Quarter: 2013Q1

REPORT INFORMATION
  Report Type: Spontaneous
  Country: US (occurrence: None)
  Receive Date: 20121212
  Receipt Date: 20121212
  Transmission Date: 20140127
  Serious: No
  Sender: FDA-Public Use
  Company Number: 1209USA005426

PATIENT
  Sex: Female

DRUGS (3)
  1. PEGINTRON [Suspect]
     Indication: HEPATITIS
     Dates: start: 201207, end: 2012
  2. VICTRELIS [Suspect]
  3. RIBAVIRIN (RIBAVIRIN) [Suspect]

REACTIONS (1)
  - Platelet count decreased [None]
